FAERS Safety Report 26118736 (Version 2)
Quarter: 2025Q4

REPORT INFORMATION
  Report Type: Other
  Country: US (occurrence: US)
  Receive Date: 20251203
  Receipt Date: 20251215
  Transmission Date: 20260117
  Serious: Yes (Other)
  Sender: AIRGAS
  Company Number: US-ALSI-2025000306

PATIENT
  Sex: Female

DRUGS (1)
  1. OXYGEN [Suspect]
     Active Substance: OXYGEN
     Indication: Hyperbaric oxygen therapy

REACTIONS (2)
  - Cutaneous B-cell lymphoma [Unknown]
  - Condition aggravated [Unknown]
